FAERS Safety Report 11574306 (Version 1)
Quarter: 2015Q3

REPORT INFORMATION
  Report Type: Spontaneous
  Country: US (occurrence: None)
  Receive Date: 20150928
  Receipt Date: 20150928
  Transmission Date: 20151125
  Serious: Yes (Disabling)
  Sender: FDA-Public Use
  Company Number: None

PATIENT
  Age: 62 Year
  Sex: Female
  Weight: 127.92 kg

DRUGS (14)
  1. PROTONIX [Concomitant]
     Active Substance: PANTOPRAZOLE SODIUM
  2. MORPHINE SULFATE 60MG RHODES PHARMACEUTICALS [Suspect]
     Active Substance: MORPHINE SULFATE
     Indication: TIBIA FRACTURE
     Route: 048
     Dates: start: 20150804, end: 20150904
  3. LASIX [Concomitant]
     Active Substance: FUROSEMIDE
  4. MORPHINE SULFATE EXTENDED RELEASE [Concomitant]
     Active Substance: MORPHINE SULFATE
  5. BATH CHAIR [Concomitant]
  6. DIAZEPAM. [Concomitant]
     Active Substance: DIAZEPAM
  7. IBUPROFEN. [Concomitant]
     Active Substance: IBUPROFEN
  8. WHEELCHAIR [Concomitant]
     Active Substance: DEVICE
  9. POTASSIUM [Concomitant]
     Active Substance: POTASSIUM
  10. PREM-PRO [Concomitant]
  11. ASPRIN [Concomitant]
     Active Substance: ASPIRIN
  12. IMATREX [Concomitant]
  13. RHINOCORT [Concomitant]
     Active Substance: BUDESONIDE
  14. AMOXICILLIN. [Concomitant]
     Active Substance: AMOXICILLIN

REACTIONS (8)
  - Rhinorrhoea [None]
  - Suicidal ideation [None]
  - Product quality issue [None]
  - Drug withdrawal syndrome [None]
  - Insomnia [None]
  - Bone pain [None]
  - Anxiety [None]
  - Eye disorder [None]

NARRATIVE: CASE EVENT DATE: 20150904
